FAERS Safety Report 17702820 (Version 1)
Quarter: 2020Q2

REPORT INFORMATION
  Report Type: Spontaneous
  Country: US (occurrence: US)
  Receive Date: 20200424
  Receipt Date: 20200424
  Transmission Date: 20200714
  Serious: No
  Sender: FDA-Public Use
  Company Number: US-HIKMA PHARMACEUTICALS USA INC.-US-H14001-20-00628

PATIENT
  Sex: Male

DRUGS (1)
  1. AMOXICILLIN. [Suspect]
     Active Substance: AMOXICILLIN
     Indication: ACUTE SINUSITIS
     Route: 065

REACTIONS (3)
  - Taste disorder [Not Recovered/Not Resolved]
  - Nerve injury [Not Recovered/Not Resolved]
  - Parosmia [Not Recovered/Not Resolved]
